FAERS Safety Report 25022339 (Version 1)
Quarter: 2025Q1

REPORT INFORMATION
  Report Type: Spontaneous
  Country: GB (occurrence: GB)
  Receive Date: 20250228
  Receipt Date: 20250228
  Transmission Date: 20250409
  Serious: Yes (Other)
  Sender: ALEXION PHARMACEUTICALS
  Company Number: None

PATIENT
  Age: 25 Year

DRUGS (1)
  1. QUETIAPINE FUMARATE [Suspect]
     Active Substance: QUETIAPINE FUMARATE
     Indication: Schizophrenia

REACTIONS (6)
  - Mania [Unknown]
  - Aggression [Unknown]
  - Pallor [Unknown]
  - Head discomfort [Unknown]
  - Condition aggravated [Unknown]
  - Hyponatraemia [Unknown]
